FAERS Safety Report 12518049 (Version 2)
Quarter: 2016Q3

REPORT INFORMATION
  Report Type: Report from Study
  Country: TR (occurrence: TR)
  Receive Date: 20160630
  Receipt Date: 20160714
  Transmission Date: 20161109
  Serious: Yes (Death, Hospitalization)
  Sender: FDA-Public Use
  Company Number: TR-ABBVIE-16P-161-1663146-00

PATIENT
  Age: 39 Year
  Sex: Male
  Weight: 72 kg

DRUGS (1)
  1. DUODOPA [Suspect]
     Active Substance: CARBIDOPA\LEVODOPA
     Indication: PARKINSON^S DISEASE
     Dosage: CONTINIOUS DOSE: 3.8 ML
     Route: 050
     Dates: start: 20160528, end: 20160623

REACTIONS (4)
  - Sepsis [Fatal]
  - Cardiac arrest [Fatal]
  - Loss of consciousness [Fatal]
  - Pneumonia [Fatal]

NARRATIVE: CASE EVENT DATE: 20160623
